FAERS Safety Report 25383350 (Version 2)
Quarter: 2025Q2

REPORT INFORMATION
  Report Type: Spontaneous
  Country: JP (occurrence: JP)
  Receive Date: 20250602
  Receipt Date: 20250615
  Transmission Date: 20250716
  Serious: Yes (Other)
  Sender: JOHNSON AND JOHNSON
  Company Number: JP-JNJFOC-20250600320

PATIENT

DRUGS (3)
  1. RISPERDAL [Suspect]
     Active Substance: RISPERIDONE
     Indication: Product used for unknown indication
     Dosage: IN THE MORNING AND EVENING
     Route: 048
  2. RISPERDAL [Suspect]
     Active Substance: RISPERIDONE
  3. RISPERDAL [Suspect]
     Active Substance: RISPERIDONE
     Dosage: IN THE MORNING AND EVENING
     Route: 048

REACTIONS (3)
  - Renal impairment [Unknown]
  - Condition aggravated [Unknown]
  - Refusal of treatment by patient [Unknown]
